FAERS Safety Report 5239422-8 (Version None)
Quarter: 2007Q1

REPORT INFORMATION
  Report Type: 
  Country: None (occurrence: None)
  Receive Date: 20070216
  Receipt Date: 20070205
  Transmission Date: 20070707
  Serious: Yes (Hospitalization)
  Sender: FDA-Public Use
  Company Number: US-JNJFOC-20070201140

PATIENT
  Sex: Female

DRUGS (3)
  1. CHILDREN'S MOTRIN [Suspect]
     Indication: PYREXIA
  2. CHILDREN'S MOTRIN [Suspect]
     Indication: ABDOMINAL PAIN UPPER
  3. CHILDREN'S MOTRIN [Suspect]
     Indication: HEADACHE

REACTIONS (3)
  - HEPATIC ARTERY OCCLUSION [None]
  - STEVENS-JOHNSON SYNDROME [None]
  - VANISHING BILE DUCT SYNDROME [None]
